FAERS Safety Report 17314582 (Version 2)
Quarter: 2020Q1

REPORT INFORMATION
  Report Type: Spontaneous
  Country: DE (occurrence: DE)
  Receive Date: 20200124
  Receipt Date: 20200124
  Transmission Date: 20200409
  Serious: Yes (Life-Threatening, Hospitalization, Other)
  Sender: FDA-Public Use
  Company Number: DE-TEVA-2020-DE-1171915

PATIENT
  Age: 18 Year
  Sex: Male
  Weight: 83 kg

DRUGS (10)
  1. NAPROXEN. [Concomitant]
     Active Substance: NAPROXEN
     Dates: start: 20070605, end: 20090129
  2. ETANERCEPT [Suspect]
     Active Substance: ETANERCEPT
     Dosage: 0.8 MG/KG, DAILY DOSE: 0.8 MG/KG MILLIGRAM(S)/KILOGRAM EVERY WEEK
     Route: 065
     Dates: start: 20070605, end: 201002
  3. LEFLUNOMIDE. [Suspect]
     Active Substance: LEFLUNOMIDE
     Indication: PRODUCT USED FOR UNKNOWN INDICATION
     Route: 065
  4. METHOTREXATE SODIUM. [Suspect]
     Active Substance: METHOTREXATE SODIUM
     Indication: PRODUCT USED FOR UNKNOWN INDICATION
     Route: 065
  5. SULFASALAZINE. [Concomitant]
     Active Substance: SULFASALAZINE
     Dates: start: 20070605, end: 20090129
  6. ETANERCEPT [Suspect]
     Active Substance: ETANERCEPT
     Dosage: 50 MG
     Route: 065
     Dates: start: 20070605, end: 20100225
  7. ABATACEPT [Suspect]
     Active Substance: ABATACEPT
     Indication: PRODUCT USED FOR UNKNOWN INDICATION
     Route: 065
  8. ADALIMUMAB [Suspect]
     Active Substance: ADALIMUMAB
     Route: 065
  9. ETANERCEPT [Suspect]
     Active Substance: ETANERCEPT
     Indication: JUVENILE IDIOPATHIC ARTHRITIS
     Dosage: 50 MG
     Route: 065
     Dates: start: 20101222, end: 20120919
  10. PREDNISONE. [Concomitant]
     Active Substance: PREDNISONE
     Dates: start: 20070605, end: 20090129

REACTIONS (3)
  - Oropharyngeal pain [Recovered/Resolved]
  - Ear pain [Recovered/Resolved]
  - Hodgkin^s disease lymphocyte predominance stage II site unspec [Not Recovered/Not Resolved]

NARRATIVE: CASE EVENT DATE: 20130515
